FAERS Safety Report 8989668 (Version 3)
Quarter: 2013Q2

REPORT INFORMATION
  Report Type: Report from Study
  Country: DE (occurrence: DE)
  Receive Date: 20121228
  Receipt Date: 20130514
  Transmission Date: 20140414
  Serious: Yes (Hospitalization, Other)
  Sender: FDA-Public Use
  Company Number: DE-BRISTOL-MYERS SQUIBB COMPANY-17038910

PATIENT
  Age: 48 Year
  Sex: Female
  Weight: 94.1 kg

DRUGS (11)
  1. CISPLATIN [Suspect]
     Indication: ADENOCARCINOMA
     Route: 042
     Dates: start: 20120928
  2. PEMETREXED DISODIUM [Suspect]
     Indication: ADENOCARCINOMA
     Dosage: VIAL
     Route: 042
     Dates: start: 20120928
  3. PREDNISOLONE [Concomitant]
     Dates: start: 20111111
  4. DEXAMETHASONE [Concomitant]
     Dates: start: 20120927, end: 20121001
  5. TROPISETRON [Concomitant]
     Dates: start: 20120928, end: 20120929
  6. ONDANSETRON [Concomitant]
     Dates: start: 20120929, end: 20121001
  7. ZOPICLONE [Concomitant]
     Indication: DEPRESSION
     Dates: start: 20120920
  8. LORAZEPAM [Concomitant]
     Indication: DEPRESSION
     Dates: start: 20120925, end: 201210
  9. PROMETHAZINE HCL [Concomitant]
     Indication: DEPRESSION
     Dosage: 20 DROPS ONCE OR TWICE PER DAY,10 DROPS FROM 27SEP12.
     Dates: start: 20120924, end: 201210
  10. FOLIC ACID [Concomitant]
  11. NOVAMINSULFON [Concomitant]

REACTIONS (1)
  - Syncope [Unknown]
